FAERS Safety Report 14438534 (Version 2)
Quarter: 2018Q1

REPORT INFORMATION
  Report Type: Spontaneous
  Country: US (occurrence: US)
  Receive Date: 20180125
  Receipt Date: 20180309
  Transmission Date: 20180509
  Serious: Yes (Hospitalization, Other)
  Sender: FDA-Public Use
  Company Number: US-ASTELLAS-2018US004104

PATIENT
  Sex: Male

DRUGS (1)
  1. XTANDI [Suspect]
     Active Substance: ENZALUTAMIDE
     Indication: MALIGNANT RESPIRATORY TRACT NEOPLASM
     Route: 065

REACTIONS (7)
  - Pain [Unknown]
  - Intra-abdominal fluid collection [Unknown]
  - Fatigue [Unknown]
  - Constipation [Unknown]
  - Dyspnoea [Unknown]
  - Liver disorder [Unknown]
  - Off label use [Unknown]
